FAERS Safety Report 8319773-0 (Version None)
Quarter: 2012Q2

REPORT INFORMATION
  Report Type: 
  Country: None (occurrence: None)
  Receive Date: 20120427
  Receipt Date: 20120418
  Transmission Date: 20120825
  Serious: Yes (Hospitalization)
  Sender: FDA-Public Use
  Company Number: US-VERTEX PHARMACEUTICALS INC.-AE-2012-005624

PATIENT
  Sex: Male

DRUGS (5)
  1. RIBAVIRIN [Concomitant]
     Indication: HEPATITIS C
     Route: 048
     Dates: start: 20120103, end: 20120321
  2. INCIVEK [Suspect]
     Indication: HEPATITIS C
     Route: 048
     Dates: start: 20120103, end: 20120321
  3. LISINOPRIL [Concomitant]
  4. HYDROCHLOROTHIAZIDE [Concomitant]
  5. PEGASYS [Concomitant]
     Indication: HEPATITIS C
     Route: 058
     Dates: start: 20120103, end: 20120321

REACTIONS (9)
  - ANAEMIA [None]
  - CONJUNCTIVITIS [None]
  - ANAPHYLACTIC REACTION [None]
  - VOCAL CORD DISORDER [None]
  - APPETITE DISORDER [None]
  - HYPOGEUSIA [None]
  - WEIGHT DECREASED [None]
  - VISION BLURRED [None]
  - DECREASED APPETITE [None]
